FAERS Safety Report 25082247 (Version 1)
Quarter: 2025Q1

REPORT INFORMATION
  Report Type: Spontaneous
  Country: US (occurrence: US)
  Receive Date: 20250317
  Receipt Date: 20250317
  Transmission Date: 20250408
  Serious: Yes (Life-Threatening, Other)
  Sender: DR REDDYS
  Company Number: None

PATIENT
  Age: 66 Year
  Sex: Male

DRUGS (7)
  1. GEMCITABINE [Suspect]
     Active Substance: GEMCITABINE
     Indication: Cholangiocarcinoma
  2. CISPLATIN [Suspect]
     Active Substance: CISPLATIN
     Indication: Cholangiocarcinoma
  3. DURVALUMAB [Suspect]
     Active Substance: DURVALUMAB
     Indication: Cholangiocarcinoma
  4. LISINOPRIL [Concomitant]
     Active Substance: LISINOPRIL
     Indication: Product used for unknown indication
  5. DAPAGLIFLOZIN [Concomitant]
     Active Substance: DAPAGLIFLOZIN
     Indication: Product used for unknown indication
  6. RITUXIMAB [Concomitant]
     Active Substance: RITUXIMAB
     Indication: Anti-glomerular basement membrane disease
  7. RITUXIMAB [Concomitant]
     Active Substance: RITUXIMAB
     Indication: Glomerulonephritis membranous

REACTIONS (5)
  - Acute kidney injury [Unknown]
  - Ascites [Unknown]
  - Deep vein thrombosis [Unknown]
  - Tumour lysis syndrome [Unknown]
  - Generalised oedema [Unknown]
